FAERS Safety Report 10958546 (Version 3)
Quarter: 2015Q3

REPORT INFORMATION
  Report Type: Spontaneous
  Country: US (occurrence: US)
  Receive Date: 20150326
  Receipt Date: 20150827
  Transmission Date: 20151125
  Serious: No
  Sender: FDA-Public Use
  Company Number: US-GLAXOSMITHKLINE-US2014GSK053812

PATIENT
  Age: 53 Year
  Sex: Female
  Weight: 58.96 kg

DRUGS (3)
  1. LOSARTAN. [Concomitant]
     Active Substance: LOSARTAN
     Dosage: 50 MG, UNK
  2. VOTRIENT [Suspect]
     Active Substance: PAZOPANIB HYDROCHLORIDE
     Dosage: 600 MG, QD
     Route: 048
     Dates: start: 20150515, end: 20150815
  3. VOTRIENT [Suspect]
     Active Substance: PAZOPANIB HYDROCHLORIDE
     Indication: PRODUCT USED FOR UNKNOWN INDICATION
     Dosage: 800 MG, QD
     Route: 048

REACTIONS (13)
  - Injection site swelling [Unknown]
  - Heart rate decreased [Unknown]
  - Headache [Unknown]
  - Surgery [Unknown]
  - Epidural injection [Unknown]
  - Hypotension [Unknown]
  - Pain [Unknown]
  - Labile blood pressure [Unknown]
  - Treatment failure [Unknown]
  - Nausea [Unknown]
  - Blood pressure increased [Unknown]
  - Injection site pain [Unknown]
  - Heart rate increased [Unknown]

NARRATIVE: CASE EVENT DATE: 20150815
